FAERS Safety Report 10714011 (Version 1)
Quarter: 2015Q1

REPORT INFORMATION
  Report Type: Spontaneous
  Country: FR (occurrence: FR)
  Receive Date: 20150115
  Receipt Date: 20150115
  Transmission Date: 20150721
  Serious: Yes (Hospitalization, Disabling, Other)
  Sender: FDA-Public Use
  Company Number: FR-CELGENE-FRA-2015012158

PATIENT
  Age: 59 Year
  Sex: Male

DRUGS (3)
  1. REVLIMID [Suspect]
     Active Substance: LENALIDOMIDE
     Route: 048
     Dates: start: 201304
  2. REVLIMID [Suspect]
     Active Substance: LENALIDOMIDE
     Route: 048
     Dates: start: 201305, end: 20130917
  3. REVLIMID [Suspect]
     Active Substance: LENALIDOMIDE
     Indication: MYELODYSPLASTIC SYNDROME
     Route: 048
     Dates: start: 201303, end: 201304

REACTIONS (7)
  - Renal tubular necrosis [Not Recovered/Not Resolved]
  - Neutropenia [Unknown]
  - Venous thrombosis [Unknown]
  - Nephrotic syndrome [Not Recovered/Not Resolved]
  - Diarrhoea [Recovering/Resolving]
  - Leukopenia [Unknown]
  - Thrombophlebitis [Recovering/Resolving]

NARRATIVE: CASE EVENT DATE: 201304
